FAERS Safety Report 20515830 (Version 1)
Quarter: 2022Q1

REPORT INFORMATION
  Report Type: Spontaneous
  Country: JP (occurrence: JP)
  Receive Date: 20220224
  Receipt Date: 20220224
  Transmission Date: 20220423
  Serious: Yes (Other)
  Sender: FDA-Public Use
  Company Number: JP-SUN PHARMACEUTICAL INDUSTRIES LTD-2022RR-327455

PATIENT
  Age: 77 Year
  Sex: Female

DRUGS (3)
  1. IMATINIB [Interacting]
     Active Substance: IMATINIB
     Indication: Metastases to liver
     Dosage: 300 MILLIGRAM, DAILY
     Route: 065
     Dates: start: 201904
  2. ERLOTINIB [Suspect]
     Active Substance: ERLOTINIB
     Indication: Lung neoplasm malignant
     Dosage: 100 MILLIGRAM, DAILY
     Route: 065
  3. GEFITINIB [Interacting]
     Active Substance: GEFITINIB
     Indication: Lung neoplasm malignant
     Dosage: 250 MILLIGRAM, DAILY
     Route: 065
     Dates: start: 201904, end: 201907

REACTIONS (6)
  - Disease progression [Unknown]
  - Diarrhoea [Unknown]
  - Drug interaction [Unknown]
  - Fatigue [Unknown]
  - Decreased appetite [Unknown]
  - Drug resistance [Unknown]
